FAERS Safety Report 10904854 (Version 1)
Quarter: 2015Q1

REPORT INFORMATION
  Report Type: Spontaneous
  Country: CH (occurrence: None)
  Receive Date: 20150306
  Receipt Date: 20150306
  Transmission Date: 20150721
  Serious: Yes (Life-Threatening)
  Sender: FDA-Public Use
  Company Number: 20150118L

PATIENT
  Age: 42 Year
  Sex: Female

DRUGS (2)
  1. HYDROCORTISONE. [Suspect]
     Active Substance: HYDROCORTISONE
     Indication: PRODUCT USED FOR UNKNOWN INDICATION
     Route: 041
     Dates: start: 20141203, end: 20141203
  2. VENOFER [Suspect]
     Active Substance: IRON SUCROSE
     Indication: PRODUCT USED FOR UNKNOWN INDICATION
     Route: 041
     Dates: start: 20141203, end: 20141203

REACTIONS (7)
  - Myalgia [None]
  - Erythema [None]
  - Blood pressure fluctuation [None]
  - Loss of consciousness [None]
  - Circulatory collapse [None]
  - Heart rate abnormal [None]
  - Rash [None]

NARRATIVE: CASE EVENT DATE: 20141203
